FAERS Safety Report 8900969 (Version 3)
Quarter: 2013Q2

REPORT INFORMATION
  Report Type: Report from Study
  Country: MX (occurrence: MX)
  Receive Date: 20121109
  Receipt Date: 20130516
  Transmission Date: 20140414
  Serious: Yes (Death, Hospitalization)
  Sender: FDA-Public Use
  Company Number: PHHY2012MX103077

PATIENT
  Age: 85 Year
  Sex: Male

DRUGS (4)
  1. DIOVAN [Suspect]
     Indication: HYPERTENSION
     Dosage: 1 DF (80 MG) DAILY
     Dates: start: 201203, end: 20121102
  2. PENTOXIFYLLINE [Concomitant]
     Indication: ARTERIAL OCCLUSIVE DISEASE
     Dosage: 2 DF, DAILY
     Dates: start: 2007
  3. SINTROM [Concomitant]
     Indication: CARDIOVASCULAR DISORDER
     Dosage: 0.5 DF, UNK
     Dates: start: 2007
  4. ZUNUN [Concomitant]
     Indication: BRAIN HYPOXIA
     Dosage: 1 DF, DAILY
     Dates: start: 201203

REACTIONS (3)
  - Cerebral ischaemia [Fatal]
  - Hypertension [Fatal]
  - Aphagia [Unknown]
